FAERS Safety Report 6091462 (Version 4)
Quarter: 2017Q4

REPORT INFORMATION
  Report Type: Spontaneous
  Country: US (occurrence: US)
  Receive Date: 20060621
  Receipt Date: 20171106
  Transmission Date: 20180321
  Serious: No
  Sender: FDA-Public Use
  Company Number: US-AMGEN-US172479

PATIENT
  Age: 79 Year
  Sex: Male

DRUGS (9)
  1. ALENDRONATE SODIUM. [Concomitant]
     Active Substance: ALENDRONATE SODIUM
  2. INFLIXIMAB [Concomitant]
     Active Substance: INFLIXIMAB
  3. FUROSEMIDE. [Concomitant]
     Active Substance: FUROSEMIDE
  4. PROCRIT [Suspect]
     Active Substance: ERYTHROPOIETIN
     Indication: ANAEMIA
     Dosage: UNK UNK, UNK
     Route: 065
     Dates: start: 20051101, end: 20051129
  5. MESALAZINE [Concomitant]
     Active Substance: MESALAMINE
  6. COLESTYRAMINE [Concomitant]
     Active Substance: CHOLESTYRAMINE
  7. VALSARTAN. [Concomitant]
     Active Substance: VALSARTAN
  8. ARANESP [Suspect]
     Active Substance: DARBEPOETIN ALFA
     Indication: ANAEMIA
     Dosage: UNK UNK, UNK
     Route: 065
     Dates: start: 20051213
  9. IRON [Concomitant]
     Active Substance: IRON

REACTIONS (2)
  - Gout [Unknown]
  - Oedema peripheral [Not Recovered/Not Resolved]

NARRATIVE: CASE EVENT DATE: 200601
